FAERS Safety Report 14505181 (Version 6)
Quarter: 2018Q2

REPORT INFORMATION
  Report Type: Report from Study
  Country: US (occurrence: US)
  Receive Date: 20180208
  Receipt Date: 20180420
  Transmission Date: 20180711
  Serious: Yes (Hospitalization, Other)
  Sender: FDA-Public Use
  Company Number: US-PFIZER INC-2018041279

PATIENT
  Age: 59 Year
  Sex: Female

DRUGS (1)
  1. IBRANCE [Suspect]
     Active Substance: PALBOCICLIB
     Indication: BREAST CANCER FEMALE
     Dosage: 125 MG, DAILY
     Route: 048
     Dates: start: 20180116, end: 2018

REACTIONS (10)
  - Vomiting [Unknown]
  - Dyspnoea [Unknown]
  - Pleural effusion [Not Recovered/Not Resolved]
  - Fatigue [Recovering/Resolving]
  - Candida infection [Unknown]
  - Dysphagia [Recovering/Resolving]
  - White blood cell count decreased [Not Recovered/Not Resolved]
  - Nausea [Recovering/Resolving]
  - Throat tightness [Unknown]
  - Constipation [Unknown]

NARRATIVE: CASE EVENT DATE: 2018
